FAERS Safety Report 4428718-5 (Version None)
Quarter: 2004Q3

REPORT INFORMATION
  Report Type: 
  Country: None (occurrence: None)
  Receive Date: 20040818
  Receipt Date: 20040130
  Transmission Date: 20050211
  Serious: No
  Sender: FDA-Public Use
  Company Number: US-BRISTOL-MYERS SQUIBB COMPANY-12493540

PATIENT
  Age: 61 Year
  Sex: Female
  Weight: 63 kg

DRUGS (5)
  1. TEQUIN [Suspect]
     Indication: PULMONARY CONGESTION
     Route: 048
     Dates: start: 20030101, end: 20030101
  2. TEQUIN [Suspect]
     Indication: UPPER RESPIRATORY TRACT INFECTION
     Route: 048
     Dates: start: 20030101, end: 20030101
  3. TAGAMET [Concomitant]
     Dosage: DOSAGE FORM-TABLET
     Route: 048
  4. VALIUM [Concomitant]
     Route: 048
  5. MULTI-VITAMIN [Concomitant]
     Dosage: DOSAGE FORM-TABLET
     Route: 048

REACTIONS (4)
  - DRY SKIN [None]
  - LACRIMATION INCREASED [None]
  - SOMNOLENCE [None]
  - THIRST [None]
